FAERS Safety Report 7400735-2 (Version None)
Quarter: 2011Q2

REPORT INFORMATION
  Report Type: 
  Country: None (occurrence: None)
  Receive Date: 20110407
  Receipt Date: 20110330
  Transmission Date: 20111010
  Serious: Yes (Hospitalization, Congenital Anomaly)
  Sender: FDA-Public Use
  Company Number: A0909860A

PATIENT
  Sex: Male
  Weight: 2.3 kg

DRUGS (2)
  1. PAXIL [Suspect]
     Route: 064
  2. PRENATAL VITAMINS [Concomitant]
     Route: 064

REACTIONS (7)
  - CONGENITAL SCOLIOSIS [None]
  - SPINA BIFIDA [None]
  - TETHERED CORD SYNDROME [None]
  - HYDROMYELIA [None]
  - DRUG EXPOSURE DURING PREGNANCY [None]
  - MENINGOMYELOCELE [None]
  - ARNOLD-CHIARI MALFORMATION [None]
